FAERS Safety Report 5423447-3 (Version None)
Quarter: 2007Q3

REPORT INFORMATION
  Report Type: 
  Country: None (occurrence: None)
  Receive Date: 20070823
  Receipt Date: 20070817
  Transmission Date: 20080115
  Serious: Yes (Death, Hospitalization)
  Sender: FDA-Public Use
  Company Number: HQWYE684117AUG07

PATIENT
  Sex: Male

DRUGS (8)
  1. CORDARONE [Suspect]
     Indication: ARRHYTHMIA
     Route: 048
  2. CORDARONE [Suspect]
     Indication: ATRIAL FIBRILLATION
  3. COMBIVENT [Concomitant]
     Route: 048
  4. FLODIL [Concomitant]
     Dosage: UNKNOWN
     Route: 048
  5. ESCITALOPRAM [Concomitant]
     Dosage: UNKNOWN
     Route: 048
  6. PREVISCAN [Suspect]
     Indication: ARRHYTHMIA
     Route: 048
     Dates: start: 20010101, end: 20070311
  7. PREVISCAN [Suspect]
     Indication: ATRIAL FIBRILLATION
  8. LEVOTHYROXINE SODIUM [Suspect]
     Route: 048

REACTIONS (1)
  - SUBDURAL HAEMATOMA [None]
